FAERS Safety Report 5372108-8 (Version None)
Quarter: 2007Q2

REPORT INFORMATION
  Report Type: 
  Country: None (occurrence: None)
  Receive Date: 20070615
  Receipt Date: 20070220
  Transmission Date: 20071010
  Serious: Yes (Other)
  Sender: FDA-Public Use
  Company Number: 2007PV000006

PATIENT
  Age: 57 Year
  Sex: Female
  Weight: 133.3575 kg

DRUGS (4)
  1. DEPODUR [Suspect]
     Indication: PROCEDURAL PAIN
     Dosage: 10 MG;X1;ED
     Route: 008
     Dates: start: 20061006, end: 20061006
  2. MORPHINE [Concomitant]
  3. PERCOCET [Concomitant]
  4. TYLENOL (CAPLET) [Concomitant]

REACTIONS (1)
  - HYPOXIA [None]
